FAERS Safety Report 5540925-7 (Version None)
Quarter: 2007Q4

REPORT INFORMATION
  Report Type: 
  Country: None (occurrence: None)
  Receive Date: 20071209
  Receipt Date: 20070212
  Transmission Date: 20080405
  Serious: No
  Sender: FDA-Public Use
  Company Number: US-AMGEN-KDL205089

PATIENT
  Sex: Female

DRUGS (8)
  1. ENBREL [Suspect]
     Indication: JUVENILE ARTHRITIS
     Route: 058
     Dates: start: 20050726, end: 20061101
  2. ENBREL [Suspect]
     Indication: PSORIASIS
  3. SYNTHROID [Concomitant]
  4. CYMBALTA [Concomitant]
  5. WELLBUTRIN [Concomitant]
  6. DARVOCET [Concomitant]
  7. BENTYL [Concomitant]
  8. ZANTAC [Concomitant]

REACTIONS (11)
  - ARTHRALGIA [None]
  - INFECTION [None]
  - INFLAMMATION [None]
  - JOINT STIFFNESS [None]
  - LYMPHADENITIS BACTERIAL [None]
  - MASS [None]
  - PHARYNGOLARYNGEAL PAIN [None]
  - PRODUCTIVE COUGH [None]
  - PSORIASIS [None]
  - RESPIRATORY TRACT CONGESTION [None]
  - SINUS CONGESTION [None]
